FAERS Safety Report 14348443 (Version 1)
Quarter: 2018Q1

REPORT INFORMATION
  Report Type: Report from Study
  Country: US (occurrence: US)
  Receive Date: 20180103
  Receipt Date: 20180103
  Transmission Date: 20180509
  Serious: Yes (Hospitalization)
  Sender: FDA-Public Use
  Company Number: US-ACTELION-A-NJ2018-165168

PATIENT
  Age: 56 Year
  Sex: Female

DRUGS (29)
  1. KCL [Concomitant]
     Active Substance: POTASSIUM CHLORIDE
  2. RESTASIS [Concomitant]
     Active Substance: CYCLOSPORINE
  3. CYCLOBENZAPRINE. [Concomitant]
     Active Substance: CYCLOBENZAPRINE
  4. LYRICA [Concomitant]
     Active Substance: PREGABALIN
  5. TAC [Concomitant]
     Active Substance: TRIAMCINOLONE ACETONIDE
  6. CEPHALEXIN. [Concomitant]
     Active Substance: CEPHALEXIN
  7. MYCOPHENOLATE [Concomitant]
     Active Substance: MYCOPHENOLIC ACID
  8. DIAZEPAM. [Concomitant]
     Active Substance: DIAZEPAM
  9. MONTELUKAST [Concomitant]
     Active Substance: MONTELUKAST SODIUM
  10. ARNUITY ELLIPTA [Concomitant]
     Active Substance: FLUTICASONE FUROATE
  11. COMBIVENT [Concomitant]
     Active Substance: ALBUTEROL SULFATE\IPRATROPIUM BROMIDE
  12. ANORO ELLIPTA [Concomitant]
     Active Substance: UMECLIDINIUM BROMIDE\VILANTEROL TRIFENATATE
  13. OXYBUTYNIN. [Concomitant]
     Active Substance: OXYBUTYNIN CHLORIDE
  14. OPSUMIT [Suspect]
     Active Substance: MACITENTAN
     Indication: PULMONARY ARTERIAL HYPERTENSION
     Dosage: 10 MG, QD
     Route: 048
     Dates: start: 20160407
  15. GABAPENTIN. [Concomitant]
     Active Substance: GABAPENTIN
  16. NADOLOL. [Concomitant]
     Active Substance: NADOLOL
  17. ATORVASTATIN [Concomitant]
     Active Substance: ATORVASTATIN
  18. MELOXICAM. [Concomitant]
     Active Substance: MELOXICAM
  19. TRAMADOL. [Concomitant]
     Active Substance: TRAMADOL
  20. VALACYCLOVIR [Concomitant]
     Active Substance: VALACYCLOVIR HYDROCHLORIDE
  21. D [Concomitant]
  22. FLUOCINONIDE. [Concomitant]
     Active Substance: FLUOCINONIDE
  23. MOXIFLOXACIN. [Concomitant]
     Active Substance: MOXIFLOXACIN
  24. RITUXAN [Concomitant]
     Active Substance: RITUXIMAB
  25. ALBUTEROL. [Concomitant]
     Active Substance: ALBUTEROL
  26. ALENDRONATE [Concomitant]
     Active Substance: ALENDRONATE SODIUM
  27. BUDESONIDE. [Concomitant]
     Active Substance: BUDESONIDE
  28. PREDNISONE. [Concomitant]
     Active Substance: PREDNISONE
  29. HYDROXYCHLOROQUINE [Concomitant]
     Active Substance: HYDROXYCHLOROQUINE

REACTIONS (1)
  - Herpes zoster [Recovered/Resolved]

NARRATIVE: CASE EVENT DATE: 20171201
